FAERS Safety Report 25653856 (Version 1)
Quarter: 2025Q3

REPORT INFORMATION
  Report Type: Spontaneous
  Country: US (occurrence: US)
  Receive Date: 20250807
  Receipt Date: 20250807
  Transmission Date: 20251021
  Serious: No
  Sender: SANOFI AVENTIS
  Company Number: US-SA-2025SA230870

PATIENT
  Sex: Female

DRUGS (2)
  1. DUPIXENT [Suspect]
     Active Substance: DUPILUMAB
     Indication: Asthma
     Dosage: 300 MG, QOW
     Route: 058
     Dates: start: 2021, end: 202411
  2. DUPIXENT [Suspect]
     Active Substance: DUPILUMAB
     Dosage: 300 MG, QOW
     Route: 058
     Dates: start: 202502

REACTIONS (7)
  - Asthma [Recovering/Resolving]
  - Rebound effect [Recovering/Resolving]
  - Dyspnoea exertional [Recovered/Resolved]
  - Nasal congestion [Recovering/Resolving]
  - Anosmia [Recovering/Resolving]
  - Eczema [Recovered/Resolved]
  - Rash pruritic [Recovered/Resolved]
